FAERS Safety Report 5726734-4 (Version None)
Quarter: 2008Q2

REPORT INFORMATION
  Report Type: 
  Country: None (occurrence: None)
  Receive Date: 20080502
  Receipt Date: 20080423
  Transmission Date: 20081010
  Serious: Yes (Death, Hospitalization)
  Sender: FDA-Public Use
  Company Number: JP-WYE-H03779608

PATIENT
  Age: 73 Year
  Sex: Female

DRUGS (8)
  1. RHEUMATREX [Suspect]
     Indication: RHEUMATOID ARTHRITIS
     Dosage: 6MG WEEKLY PRESCRIBED BUT PT. NON-COMPLIANT, TOOK VARING DOSES
     Route: 048
     Dates: start: 20061229, end: 20080413
  2. AMLODIPINE [Concomitant]
     Dosage: UNKNOWN
     Route: 048
  3. RIMATIL [Concomitant]
     Dosage: UNKNOWN
     Route: 048
  4. ACECOL [Concomitant]
     Dosage: UNKNOWN
     Route: 048
  5. ACINON [Concomitant]
     Dosage: UNKNOWN
     Route: 048
  6. DIOVAN [Concomitant]
     Dosage: UNKNOWN
     Route: 048
  7. OSTELUC [Suspect]
     Dosage: UNKNOWN
     Route: 048
  8. CRESTOR [Concomitant]
     Dosage: UNKNOWN
     Route: 048

REACTIONS (9)
  - ABDOMINAL PAIN [None]
  - CARDIOVASCULAR DISORDER [None]
  - FRACTURE [None]
  - INCORRECT DOSE ADMINISTERED [None]
  - MULTI-ORGAN FAILURE [None]
  - PANCYTOPENIA [None]
  - PYREXIA [None]
  - RENAL IMPAIRMENT [None]
  - VOMITING [None]
